FAERS Safety Report 5945901-8 (Version None)
Quarter: 2008Q4

REPORT INFORMATION
  Report Type: 
  Country: None (occurrence: None)
  Receive Date: 20081106
  Receipt Date: 20081028
  Transmission Date: 20090506
  Serious: Yes (Other)
  Sender: FDA-Public Use
  Company Number: 100#03#2008-05506

PATIENT
  Age: 63 Year
  Sex: Female

DRUGS (7)
  1. ONDANSETRON HCL [Suspect]
     Indication: DRUG USE FOR UNKNOWN INDICATION
     Dosage: 8 MG TWICE DAILY
  2. BORTEZOMIB (BORTEZOMIB) [Suspect]
     Indication: MYELOMA RECURRENCE
     Dosage: 1.3 MG/M2 INTRAVENOUS (NOT OTHERWISE SPECIFIED)
     Route: 042
     Dates: start: 20080512, end: 20080804
  3. DEXAMETHASONE TAB [Suspect]
     Indication: DRUG USE FOR UNKNOWN INDICATION
     Dosage: 20 MG
  4. ACYCLOVIR [Concomitant]
  5. FOLIC ACID [Concomitant]
  6. METOCLOPRAMIDE [Concomitant]
  7. MORPHINE [Concomitant]

REACTIONS (1)
  - LIVER FUNCTION TEST ABNORMAL [None]
